FAERS Safety Report 10936907 (Version 2)
Quarter: 2015Q2

REPORT INFORMATION
  Report Type: Spontaneous
  Country: US (occurrence: US)
  Receive Date: 20150321
  Receipt Date: 20150525
  Transmission Date: 20150821
  Serious: Yes (Other)
  Sender: FDA-Public Use
  Company Number: US-JNJFOC-20141006637

PATIENT
  Age: 3 Year
  Sex: Female

DRUGS (2)
  1. TOPAMAX [Suspect]
     Active Substance: TOPIRAMATE
     Indication: FRONTAL LOBE EPILEPSY
     Route: 048
  2. KEPPRA [Suspect]
     Active Substance: LEVETIRACETAM
     Indication: FRONTAL LOBE EPILEPSY
     Route: 065

REACTIONS (4)
  - Gait disturbance [Unknown]
  - Generalised tonic-clonic seizure [Not Recovered/Not Resolved]
  - Speech disorder [Unknown]
  - Dizziness [Unknown]
